FAERS Safety Report 16487134 (Version 1)
Quarter: 2019Q2

REPORT INFORMATION
  Report Type: Spontaneous
  Country: US (occurrence: US)
  Receive Date: 20190627
  Receipt Date: 20190627
  Transmission Date: 20190711
  Serious: No
  Sender: FDA-Public Use
  Company Number: US-GALDERMA-US19020743

PATIENT
  Age: 26 Year
  Sex: Female

DRUGS (5)
  1. PROACTIV MD DAILY OIL CONTROL SPF 30 [Suspect]
     Active Substance: AVOBENZONE\OCTISALATE\OCTOCRYLENE
     Indication: ACNE
     Route: 061
     Dates: start: 20160315, end: 20190325
  2. PROACTIV MD DEEP CLEANSING FACE WASH [Concomitant]
     Active Substance: COSMETICS
     Indication: ACNE
     Route: 061
     Dates: start: 20160315, end: 20190325
  3. PROACTIV GREEN TEA MOISTURIZER [Concomitant]
     Active Substance: COSMETICS
     Indication: ACNE
     Route: 061
     Dates: start: 20160315, end: 20190325
  4. PROACTIV MD ADAPALENE ACNE TREATMENT [Suspect]
     Active Substance: ADAPALENE
     Indication: ACNE
     Dosage: 0.1%
     Route: 061
     Dates: start: 20160315, end: 20190325
  5. PROACTIV DETOX HYDROGEL FACE MASK [Concomitant]
     Indication: ACNE
     Route: 061
     Dates: start: 20160315, end: 20190325

REACTIONS (4)
  - Pain of skin [Recovering/Resolving]
  - Erythema [Recovering/Resolving]
  - Acne [Recovering/Resolving]
  - Acne cystic [Recovering/Resolving]

NARRATIVE: CASE EVENT DATE: 20190315
